FAERS Safety Report 24351946 (Version 1)
Quarter: 2024Q3

REPORT INFORMATION
  Report Type: Report from Study
  Country: US (occurrence: US)
  Receive Date: 20240923
  Receipt Date: 20240923
  Transmission Date: 20241017
  Serious: No
  Sender: ROCHE
  Company Number: US-ROCHE-3576651

PATIENT
  Age: 72 Year
  Sex: Male

DRUGS (13)
  1. HERCEPTIN [Suspect]
     Active Substance: TRASTUZUMAB
     Indication: Breast cancer male
     Dosage: LAST DATE OF TREATMENT: 21/FEB/2025, D1 EVERY 21 X 18 WEEKS, CYCLES GIVEN/ PLANNED: 5/18
     Route: 065
     Dates: start: 20240220
  2. AMLODIPINE [Concomitant]
     Active Substance: AMLODIPINE BESYLATE
  3. ATORVASTATIN [Concomitant]
     Active Substance: ATORVASTATIN
  4. SODIUM CHLORIDE [Concomitant]
     Active Substance: SODIUM CHLORIDE
  5. CLARITIN [Concomitant]
     Active Substance: LORATADINE
  6. COLACE [Concomitant]
     Active Substance: DOCUSATE SODIUM
  7. COMPAZINE [Concomitant]
     Active Substance: PROCHLORPERAZINE MALEATE
  8. IMODIUM [Concomitant]
     Active Substance: LOPERAMIDE HYDROCHLORIDE
  9. ONDANSETRON [Concomitant]
     Active Substance: ONDANSETRON
  10. TAMSULOSIN [Concomitant]
     Active Substance: TAMSULOSIN
  11. VITAMIN B6 [Concomitant]
     Active Substance: PYRIDOXINE HYDROCHLORIDE
  12. VITAMIN D2 [Concomitant]
     Active Substance: ERGOCALCIFEROL
  13. TAXOL [Concomitant]
     Active Substance: PACLITAXEL

REACTIONS (7)
  - Thrombocytopenia [Unknown]
  - Abdominal distension [Unknown]
  - Epistaxis [Unknown]
  - Fatigue [Unknown]
  - White blood cell disorder [Unknown]
  - Anaemia [Unknown]
  - Polyneuropathy [Unknown]

NARRATIVE: CASE EVENT DATE: 20240308
